FAERS Safety Report 7339932-3 (Version None)
Quarter: 2011Q1

REPORT INFORMATION
  Report Type: 
  Country: None (occurrence: None)
  Receive Date: 20110309
  Receipt Date: 20110223
  Transmission Date: 20110831
  Serious: Yes (Life-Threatening, Hospitalization)
  Sender: FDA-Public Use
  Company Number: DK-RANBAXY-2009RR-23789

PATIENT
  Age: 70 Year
  Sex: Male

DRUGS (3)
  1. NITRAZEPAM [Suspect]
     Indication: SUICIDE ATTEMPT
     Dosage: UNK
  2. MORPHINE SULFATE [Suspect]
     Indication: SUICIDE ATTEMPT
     Dosage: UNK
  3. OXAZEPAM [Suspect]
     Indication: SUICIDE ATTEMPT
     Dosage: UNK

REACTIONS (3)
  - TOXICITY TO VARIOUS AGENTS [None]
  - SUICIDE ATTEMPT [None]
  - OVERDOSE [None]
